FAERS Safety Report 23089764 (Version 1)
Quarter: 2023Q4

REPORT INFORMATION
  Report Type: Spontaneous
  Country: US (occurrence: None)
  Receive Date: 20231020
  Receipt Date: 20231020
  Transmission Date: 20240110
  Serious: Yes (Other)
  Sender: FDA-Public Use
  Company Number: None

PATIENT
  Age: 43 Year
  Sex: Male
  Weight: 99 kg

DRUGS (3)
  1. PEG-3350, ELECTROLYTES, AND ASCORBATE [Suspect]
     Active Substance: ASCORBIC ACID\POLYETHYLENE GLYCOL 3350\POTASSIUM CHLORIDE\SODIUM ASCORBATE\SODIUM CHLORIDE\SODIUM SU
     Dosage: OTHER QUANTITY : 2 JAR OF LIQUID;?OTHER FREQUENCY : 1 NIGHT/1 MORNING;?
     Route: 048
     Dates: start: 20231019, end: 20231019
  2. Dulcolax [Concomitant]
  3. MOVIPREP [Concomitant]
     Active Substance: ASCORBIC ACID\POLYETHYLENE GLYCOL 3350\POTASSIUM CHLORIDE\SODIUM ASCORBATE\SODIUM CHLORIDE\SODIUM SU

REACTIONS (6)
  - Pruritus [None]
  - Urticaria [None]
  - Throat irritation [None]
  - Reaction to excipient [None]
  - Drug rechallenge positive [None]
  - Exposure via skin contact [None]

NARRATIVE: CASE EVENT DATE: 20231019
